FAERS Safety Report 7211746-4 (Version None)
Quarter: 2011Q1

REPORT INFORMATION
  Report Type: 
  Country: None (occurrence: None)
  Receive Date: 20110105
  Receipt Date: 20101213
  Transmission Date: 20110831
  Serious: Yes (Death, Other)
  Sender: FDA-Public Use
  Company Number: GB-GENENTECH-307361

PATIENT
  Sex: Female
  Weight: 73 kg

DRUGS (1)
  1. LUCENTIS [Suspect]
     Indication: PRODUCT USED FOR UNKNOWN INDICATION
     Route: 031

REACTIONS (6)
  - FALL [None]
  - CARDIAC ARREST [None]
  - MYOCARDIAL ISCHAEMIA [None]
  - HYPERTENSIVE HEART DISEASE [None]
  - FEMUR FRACTURE [None]
  - ARTERIOSCLEROSIS CORONARY ARTERY [None]
